FAERS Safety Report 6697437-7 (Version None)
Quarter: 2010Q2

REPORT INFORMATION
  Report Type: 
  Country: None (occurrence: None)
  Receive Date: 20100426
  Receipt Date: 20100412
  Transmission Date: 20101027
  Serious: Yes (Other)
  Sender: FDA-Public Use
  Company Number: GB-MYLANLABS-2010S1006223

PATIENT
  Age: 55 Year
  Sex: Female

DRUGS (5)
  1. SODIUM VALPROATE [Suspect]
     Indication: SCHIZOPHRENIA
     Route: 048
  2. QUETIAPINE [Suspect]
     Indication: SCHIZOPHRENIA
     Route: 048
     Dates: start: 20091013
  3. ZAPONEX [Suspect]
     Indication: DRUG USE FOR UNKNOWN INDICATION
     Route: 048
     Dates: start: 20090911, end: 20090923
  4. IRBESARTAN [Concomitant]
     Indication: HYPERTENSION
  5. LANSOPRAZOLE [Concomitant]
     Indication: REFLUX OESOPHAGITIS

REACTIONS (5)
  - ELECTROCARDIOGRAM ABNORMAL [None]
  - LOWER RESPIRATORY TRACT INFECTION [None]
  - MYOCARDITIS [None]
  - NEUTROPENIA [None]
  - TACHYCARDIA [None]
